FAERS Safety Report 6030487-2 (Version None)
Quarter: 2009Q1

REPORT INFORMATION
  Report Type: 
  Country: None (occurrence: None)
  Receive Date: 20090105
  Receipt Date: 20090105
  Transmission Date: 20090719
  Serious: Yes (Other)
  Sender: FDA-Public Use
  Company Number: None

PATIENT
  Age: 31 Year
  Sex: Female
  Weight: 91.173 kg

DRUGS (2)
  1. PROVENTIL-HFA [Suspect]
     Indication: ASTHMA
     Dosage: 1-2 PUFFS BY MOUTH EVERY 4-6 HRS
     Dates: start: 20081001, end: 20081231
  2. PROAIR HFA [Suspect]
     Indication: ASTHMA
     Dosage: 1-2 PUFFS BY MOUTH EVERY 4-6 HRS
     Dates: start: 20081229, end: 20081231

REACTIONS (2)
  - DRUG INEFFECTIVE [None]
  - PRODUCT QUALITY ISSUE [None]
